FAERS Safety Report 12837448 (Version 1)
Quarter: 2016Q4

REPORT INFORMATION
  Report Type: Report from Study
  Country: US (occurrence: US)
  Receive Date: 20161011
  Receipt Date: 20161011
  Transmission Date: 20170207
  Serious: Yes (Death)
  Sender: FDA-Public Use
  Company Number: US-B.I. PHARMACEUTICALS,INC./RIDGEFIELD-2016-BI-065012

PATIENT
  Sex: Female

DRUGS (1)
  1. ACTILYSE CATHFLO [Suspect]
     Active Substance: ALTEPLASE
     Indication: HEPATIC CIRRHOSIS
     Route: 065
     Dates: start: 20160820, end: 20160820

REACTIONS (2)
  - Off label use [Unknown]
  - Death [Fatal]
